FAERS Safety Report 8385225 (Version 3)
Quarter: 2015Q1

REPORT INFORMATION
  Report Type: Report from Study
  Country: US (occurrence: US)
  Receive Date: 20120202
  Receipt Date: 20150227
  Transmission Date: 20150721
  Serious: Yes (Death)
  Sender: FDA-Public Use
  Company Number: US-ROCHE-1035700

PATIENT
  Sex: Male

DRUGS (10)
  1. CIMETIDINE HCL [Concomitant]
     Route: 042
  2. LORATADINE. [Concomitant]
     Active Substance: LORATADINE
     Route: 048
  3. PALONOSETRON HYDROCHLORIDE [Concomitant]
     Active Substance: PALONOSETRON HYDROCHLORIDE
     Route: 042
  4. AVASTIN [Suspect]
     Active Substance: BEVACIZUMAB
     Indication: PROSTATE CANCER
     Route: 042
     Dates: start: 20070807
  5. AVASTIN [Suspect]
     Active Substance: BEVACIZUMAB
     Route: 042
     Dates: start: 20070830
  6. TAXOTERE [Concomitant]
     Active Substance: DOCETAXEL
  7. ACETAMINOPHEN. [Concomitant]
     Active Substance: ACETAMINOPHEN
     Route: 048
  8. MITOXANTRONE HCL [Concomitant]
     Active Substance: MITOXANTRONE HYDROCHLORIDE
     Route: 042
  9. RITUXAN [Suspect]
     Active Substance: RITUXIMAB
     Indication: PRODUCT USED FOR UNKNOWN INDICATION
     Route: 042
     Dates: start: 20070808
  10. DECADRON [Concomitant]
     Active Substance: DEXAMETHASONE
     Route: 042

REACTIONS (2)
  - Death [Fatal]
  - Off label use [Unknown]
